FAERS Safety Report 7268831-0 (Version None)
Quarter: 2011Q1

REPORT INFORMATION
  Report Type: 
  Country: None (occurrence: None)
  Receive Date: 20110201
  Receipt Date: 20110120
  Transmission Date: 20110831
  Serious: Yes (Other)
  Sender: FDA-Public Use
  Company Number: JP-JNJCH-2011001557

PATIENT
  Age: 70 Year
  Sex: Male

DRUGS (1)
  1. RIUP %5 [Suspect]
     Indication: PRODUCT USED FOR UNKNOWN INDICATION
     Dosage: TEXT:1ML 2X DAY
     Route: 061
     Dates: start: 20100901, end: 20101201

REACTIONS (1)
  - VISUAL ACUITY REDUCED [None]
